FAERS Safety Report 12639607 (Version 3)
Quarter: 2023Q2

REPORT INFORMATION
  Report Type: Spontaneous
  Country: BE (occurrence: BE)
  Receive Date: 20160810
  Receipt Date: 20230411
  Transmission Date: 20230722
  Serious: Yes (Life-Threatening, Other)
  Sender: FDA-Public Use
  Company Number: None

PATIENT
  Age: 55 Year
  Sex: Male

DRUGS (20)
  1. MYCOPHENOLATE MOFETIL [Interacting]
     Active Substance: MYCOPHENOLATE MOFETIL
     Indication: Immunosuppression
  2. TACROLIMUS [Interacting]
     Active Substance: TACROLIMUS
     Indication: Immunosuppression
  3. METHYLPREDNISOLONE [Interacting]
     Active Substance: METHYLPREDNISOLONE
     Indication: Immunosuppression
     Dosage: PREVIOUSLY RECEIVED INTRAVENOUS FOR 4 DAYS AND THEN DOSE REDUCED TO 4 MG.
     Route: 042
  4. CITALOPRAM [Interacting]
     Active Substance: CITALOPRAM HYDROBROMIDE
     Indication: Product used for unknown indication
     Dates: start: 2012, end: 2012
  5. FENTANYL [Interacting]
     Active Substance: FENTANYL
     Indication: Thoracic vertebral fracture
     Dosage: DOSAGE FORM: PATCHES
     Route: 062
     Dates: start: 2012, end: 2012
  6. POSACONAZOLE [Suspect]
     Active Substance: POSACONAZOLE
     Indication: Aspergilloma
     Route: 048
     Dates: start: 2012, end: 2012
  7. ABELCET [Suspect]
     Active Substance: AMPHOTERICIN B\DIMYRISTOYLPHOSPHATIDYLCHOLINE, DL-\DIMYRISTOYLPHOSPHATIDYLGLYCEROL, DL-
     Indication: Aspergilloma
     Route: 042
     Dates: start: 2012, end: 2012
  8. VORICONAZOLE [Suspect]
     Active Substance: VORICONAZOLE
     Indication: Aspergillus infection
     Route: 048
     Dates: start: 2012, end: 2012
  9. ITRACONAZOLE [Concomitant]
     Active Substance: ITRACONAZOLE
     Indication: Aspergillus infection
     Route: 048
  10. COTRIMOXAZOLE [Concomitant]
     Active Substance: SULFAMETHOXAZOLE\TRIMETHOPRIM
     Indication: Pseudomonas infection
     Dosage: SULFAMETHOXAZOLE 400 MG, ?TRIMETHOPRIM 80 MG
     Route: 048
  11. METFORMIN [Concomitant]
     Active Substance: METFORMIN HYDROCHLORIDE
     Indication: Glucose tolerance impaired
     Route: 048
     Dates: start: 2012
  12. CASPOFUNGIN [Concomitant]
     Active Substance: CASPOFUNGIN
     Indication: Aspergillus infection
     Route: 042
     Dates: start: 2012, end: 2012
  13. CIPROFLOXACIN [Concomitant]
     Active Substance: CIPROFLOXACIN
     Indication: Sinusitis bacterial
     Route: 048
     Dates: start: 2012
  14. ZOLEDRONIC ACID [Concomitant]
     Active Substance: ZOLEDRONIC ACID
     Indication: Thoracic vertebral fracture
     Dates: start: 2012
  15. AMPHOTERICIN B [Concomitant]
     Active Substance: AMPHOTERICIN B
     Route: 042
     Dates: start: 2012
  16. METHYLPREDNISOLONE [Interacting]
     Active Substance: METHYLPREDNISOLONE
     Indication: Immunosuppression
     Dosage: PREVIOUSLY RECEIVED INTRAVENOUS FOR 4 DAYS AND THEN DOSE REDUCED TO 4 MG.
     Dates: start: 2012
  17. POSACONAZOLE [Suspect]
     Active Substance: POSACONAZOLE
     Indication: Aspergilloma
     Dates: start: 2012, end: 2012
  18. MYCOPHENOLATE MOFETIL [Interacting]
     Active Substance: MYCOPHENOLATE MOFETIL
     Indication: Immunosuppression
  19. METFORMIN [Concomitant]
     Active Substance: METFORMIN HYDROCHLORIDE
     Indication: Glucose tolerance impaired
     Dates: start: 2012
  20. CIPROFLOXACIN [Concomitant]
     Active Substance: CIPROFLOXACIN
     Indication: Sinusitis bacterial
     Dates: start: 2012

REACTIONS (14)
  - Sinusitis bacterial [Unknown]
  - Aspergilloma [Unknown]
  - Cytomegalovirus viraemia [Unknown]
  - Thoracic vertebral fracture [Unknown]
  - Stupor [Unknown]
  - Drug interaction [Unknown]
  - Nephropathy toxic [Unknown]
  - Pneumonia pseudomonal [Unknown]
  - Aspergillus infection [Unknown]
  - Transplant rejection [Unknown]
  - Inappropriate antidiuretic hormone secretion [Unknown]
  - Abscess jaw [Unknown]
  - Glucose tolerance impaired [Unknown]
  - Pseudomonas infection [Unknown]

NARRATIVE: CASE EVENT DATE: 20120101
